FAERS Safety Report 21233485 (Version 1)
Quarter: 2022Q3

REPORT INFORMATION
  Report Type: Spontaneous
  Country: AU (occurrence: AU)
  Receive Date: 20220819
  Receipt Date: 20220819
  Transmission Date: 20221027
  Serious: Yes (Hospitalization, Other)
  Sender: FDA-Public Use
  Company Number: AU-JNJFOC-20220825188

PATIENT
  Age: 43 Year
  Sex: Male

DRUGS (6)
  1. PALIPERIDONE PALMITATE [Suspect]
     Active Substance: PALIPERIDONE PALMITATE
     Indication: Schizophrenia
     Route: 030
     Dates: start: 2017
  2. PALIPERIDONE PALMITATE [Suspect]
     Active Substance: PALIPERIDONE PALMITATE
  3. PALIPERIDONE PALMITATE [Suspect]
     Active Substance: PALIPERIDONE PALMITATE
  4. RAMIPRIL [Concomitant]
     Active Substance: RAMIPRIL
     Indication: Blood pressure measurement
  5. BISOPROLOL [Concomitant]
     Active Substance: BISOPROLOL
     Indication: Blood pressure measurement
  6. BREXPIPRAZOLE [Concomitant]
     Active Substance: BREXPIPRAZOLE

REACTIONS (20)
  - Anorgasmia [Unknown]
  - Somnolence [Unknown]
  - Suicidal ideation [Unknown]
  - Haematochezia [Unknown]
  - Electrocardiogram QT interval abnormal [Unknown]
  - Orchidectomy [Unknown]
  - Ischaemic cardiomyopathy [Unknown]
  - Memory impairment [Unknown]
  - Speech disorder [Unknown]
  - Fluid intake restriction [Unknown]
  - Psychotic disorder [Unknown]
  - Headache [Unknown]
  - Dry mouth [Unknown]
  - Fatigue [Unknown]
  - Hypersomnia [Unknown]
  - Weight increased [Unknown]
  - Hypogonadism [Unknown]
  - Gynaecomastia [Unknown]
  - Thirst [Unknown]
  - Hunger [Unknown]

NARRATIVE: CASE EVENT DATE: 20170101
